FAERS Safety Report 17293201 (Version 1)
Quarter: 2020Q1

REPORT INFORMATION
  Report Type: Spontaneous
  Country: ZA (occurrence: ZA)
  Receive Date: 20200121
  Receipt Date: 20200121
  Transmission Date: 20200409
  Serious: Yes (Hospitalization)
  Sender: FDA-Public Use
  Company Number: NVSC2020ZA011720

PATIENT
  Sex: Female

DRUGS (1)
  1. ENTRESTO [Suspect]
     Active Substance: SACUBITRIL\VALSARTAN
     Indication: DYSPNOEA
     Dosage: 50 MG, BID
     Route: 065
     Dates: start: 201912

REACTIONS (3)
  - Product use in unapproved indication [Unknown]
  - Hypotension [Not Recovered/Not Resolved]
  - Dyspnoea [Unknown]
